FAERS Safety Report 9155686 (Version 1)
Quarter: 2013Q1

REPORT INFORMATION
  Report Type: Report from Study
  Country: DE (occurrence: DE)
  Receive Date: 20130311
  Receipt Date: 20130311
  Transmission Date: 20140127
  Serious: Yes (Hospitalization)
  Sender: FDA-Public Use
  Company Number: DE-UCBSA-080299

PATIENT
  Age: 50 Year
  Sex: Female

DRUGS (5)
  1. VIMPAT [Suspect]
     Indication: EPILEPSY
     Dosage: 100MG/DAY
     Dates: start: 20110711, end: 2011
  2. VIMPAT [Suspect]
     Indication: EPILEPSY
     Dosage: 400MG/DAY
     Dates: start: 2011
  3. LEVETIRACETAM [Concomitant]
     Dosage: 3000MG/DAY
     Dates: start: 2011
  4. LEVETIRACETAM [Concomitant]
     Dosage: 2000MG/DAY
  5. CARBAMAZEPINE [Concomitant]
     Indication: EPILEPSY
     Dosage: 1800MG/DAY
     Dates: end: 2011

REACTIONS (1)
  - Status epilepticus [Unknown]
